FAERS Safety Report 9643222 (Version 2)
Quarter: 2013Q4

REPORT INFORMATION
  Report Type: Report from Study
  Country: DE (occurrence: DE)
  Receive Date: 20131024
  Receipt Date: 20131024
  Transmission Date: 20140711
  Serious: Yes (Death, Other)
  Sender: FDA-Public Use
  Company Number: DE-CELGENEUS-062-21880-13044967

PATIENT
  Sex: 0

DRUGS (2)
  1. REVLIMID [Suspect]
     Indication: PLASMA CELL MYELOMA
     Route: 048
  2. DEXAMETHASONE [Concomitant]
     Indication: PLASMA CELL MYELOMA
     Route: 065

REACTIONS (8)
  - Death [Fatal]
  - Thrombosis [Unknown]
  - Toxicity to various agents [Unknown]
  - Anaemia [Unknown]
  - Thrombocytopenia [Unknown]
  - Neuropathy peripheral [Unknown]
  - No therapeutic response [Unknown]
  - Plasma cell myeloma [Unknown]
